FAERS Safety Report 6098424-2 (Version None)
Quarter: 2009Q1

REPORT INFORMATION
  Report Type: 
  Country: None (occurrence: None)
  Receive Date: 20090302
  Receipt Date: 20090129
  Transmission Date: 20090719
  Serious: No
  Sender: FDA-Public Use
  Company Number: US-BAYER-200912557NA

PATIENT
  Sex: Female

DRUGS (1)
  1. MIRENA [Suspect]
     Indication: DRUG USE FOR UNKNOWN INDICATION
     Route: 015
     Dates: end: 20090128

REACTIONS (5)
  - GENITAL HAEMORRHAGE [None]
  - HORMONE LEVEL ABNORMAL [None]
  - NAUSEA [None]
  - NERVOUSNESS [None]
  - TEARFULNESS [None]
